FAERS Safety Report 5367108-8 (Version None)
Quarter: 2007Q2

REPORT INFORMATION
  Report Type: 
  Country: None (occurrence: None)
  Receive Date: 20070622
  Receipt Date: 20060522
  Transmission Date: 20071010
  Serious: No
  Sender: FDA-Public Use
  Company Number: US-BRISTOL-MYERS SQUIBB COMPANY-13385901

PATIENT
  Age: 89 Year
  Sex: Female
  Weight: 61 kg

DRUGS (3)
  1. SINEMET [Suspect]
     Indication: PARKINSON'S DISEASE
     Dosage: 25MG/100MG = 1 DOSAGE FORM
     Route: 048
  2. PROTONIX [Concomitant]
  3. SYNTHROID [Concomitant]

REACTIONS (1)
  - SOMNOLENCE [None]
